FAERS Safety Report 25242345 (Version 1)
Quarter: 2025Q2

REPORT INFORMATION
  Report Type: Spontaneous
  Country: US (occurrence: US)
  Receive Date: 20250427
  Receipt Date: 20250427
  Transmission Date: 20250716
  Serious: No
  Sender: JOHNSON AND JOHNSON
  Company Number: US-JNJFOC-20250409030

PATIENT
  Age: 43 Year
  Sex: Female
  Weight: 42.6 kg

DRUGS (23)
  1. REMICADE [Suspect]
     Active Substance: INFLIXIMAB
     Indication: Product used for unknown indication
     Route: 041
  2. IRON [Concomitant]
     Active Substance: IRON
  3. BENZOYL PEROXIDE\ERYTHROMYCIN [Concomitant]
     Active Substance: BENZOYL PEROXIDE\ERYTHROMYCIN
  4. ALBUTEROL\IPRATROPIUM [Concomitant]
     Active Substance: ALBUTEROL\IPRATROPIUM
  5. HYDROCORTISONE [Concomitant]
     Active Substance: HYDROCORTISONE
  6. OMEPRAZOLE [Concomitant]
     Active Substance: OMEPRAZOLE
  7. PREDNISONE [Concomitant]
     Active Substance: PREDNISONE
  8. FOLIC ACID [Concomitant]
     Active Substance: FOLIC ACID
  9. VORICONAZOLE [Concomitant]
     Active Substance: VORICONAZOLE
  10. CALCIUM CARBONATE\CHOLECALCIFEROL [Concomitant]
     Active Substance: CALCIUM CARBONATE\CHOLECALCIFEROL
  11. ELIQUIS [Concomitant]
     Active Substance: APIXABAN
  12. SYMBICORT [Concomitant]
     Active Substance: BUDESONIDE\FORMOTEROL FUMARATE DIHYDRATE
  13. POLYVINYL ALCOHOL [Concomitant]
     Active Substance: POLYVINYL ALCOHOL
  14. FLUTICASONE PROPIONATE [Concomitant]
     Active Substance: FLUTICASONE PROPIONATE
  15. MAALOX ADVANCED [CALCIUM CARBONATE;SIMETICONE] [Concomitant]
  16. OXYGEN [Concomitant]
     Active Substance: OXYGEN
  17. FEXOFENADINE HYDROCHLORIDE [Concomitant]
     Active Substance: FEXOFENADINE HYDROCHLORIDE
  18. ATROVENT HFA [Concomitant]
     Active Substance: IPRATROPIUM BROMIDE
  19. CALCIUM CARBONATE [Concomitant]
     Active Substance: CALCIUM CARBONATE
  20. CARBOXYMETHYLCELLULOSE [Concomitant]
     Active Substance: CARBOXYMETHYLCELLULOSE
  21. AZELASTINE [Concomitant]
     Active Substance: AZELASTINE
  22. FLUTICASONE [Concomitant]
     Active Substance: FLUTICASONE
  23. TYVASO DPI [Concomitant]
     Active Substance: TREPROSTINIL

REACTIONS (2)
  - Feeling cold [Unknown]
  - Hypotension [Unknown]
